FAERS Safety Report 6317040-8 (Version None)
Quarter: 2009Q3

REPORT INFORMATION
  Report Type: 
  Country: None (occurrence: None)
  Receive Date: 20090820
  Receipt Date: 20090812
  Transmission Date: 20100115
  Serious: Yes (Hospitalization)
  Sender: FDA-Public Use
  Company Number: US-AMGEN-QUU359905

PATIENT
  Sex: Male

DRUGS (3)
  1. ENBREL [Suspect]
     Indication: PSORIASIS
     Dates: start: 20090401, end: 20090701
  2. CHOLESTYRAMINE [Concomitant]
  3. UNSPECIFIED MEDICATION [Concomitant]

REACTIONS (10)
  - DISORIENTATION [None]
  - DIZZINESS [None]
  - EYE SWELLING [None]
  - FEELING ABNORMAL [None]
  - HEADACHE [None]
  - HYPOAESTHESIA [None]
  - LETHARGY [None]
  - MENTAL IMPAIRMENT [None]
  - SOMNOLENCE [None]
  - VISION BLURRED [None]
